FAERS Safety Report 5023468-9 (Version None)
Quarter: 2006Q2

REPORT INFORMATION
  Report Type: 
  Country: None (occurrence: None)
  Receive Date: 20060612
  Receipt Date: 20060531
  Transmission Date: 20061013
  Serious: Yes (Other)
  Sender: FDA-Public Use
  Company Number: PHBS2006BE08056

PATIENT
  Age: 80 Year
  Sex: Female

DRUGS (2)
  1. AREDIA [Suspect]
     Indication: METASTASES TO BONE
     Route: 065
     Dates: start: 20010101
  2. ZOMETA [Suspect]
     Indication: METASTASES TO BONE
     Dates: end: 20060501

REACTIONS (1)
  - OSTEONECROSIS [None]
